FAERS Safety Report 7289068-5 (Version None)
Quarter: 2011Q1

REPORT INFORMATION
  Report Type: 
  Country: None (occurrence: None)
  Receive Date: 20110211
  Receipt Date: 20110207
  Transmission Date: 20110831
  Serious: Yes (Other)
  Sender: FDA-Public Use
  Company Number: FR-PFIZER INC-2011026834

PATIENT
  Age: 85 Year
  Sex: Female

DRUGS (2)
  1. ZYVOX [Suspect]
     Dosage: 600 MG, 2X/DAY
  2. LYRICA [Suspect]
     Dosage: 75 MG, DAILY

REACTIONS (2)
  - THROMBOCYTOPENIC PURPURA [None]
  - PRURITUS [None]
